FAERS Safety Report 5281320-8 (Version None)
Quarter: 2007Q1

REPORT INFORMATION
  Report Type: 
  Country: None (occurrence: None)
  Receive Date: 20070330
  Receipt Date: 20070321
  Transmission Date: 20070707
  Serious: Yes (Hospitalization, Other)
  Sender: FDA-Public Use
  Company Number: US-JNJFOC-20051002169

PATIENT
  Sex: Female
  Weight: 50.8 kg

DRUGS (7)
  1. REMICADE [Suspect]
     Route: 042
  2. REMICADE [Suspect]
     Route: 042
  3. REMICADE [Suspect]
     Route: 042
  4. REMICADE [Suspect]
     Indication: RHEUMATOID ARTHRITIS
     Route: 042
  5. METHOTREXATE [Concomitant]
  6. METHOTREXATE [Concomitant]
  7. ULTRACET [Concomitant]

REACTIONS (2)
  - LYMPHOMA [None]
  - PARANEOPLASTIC SYNDROME [None]
